FAERS Safety Report 18379523 (Version 1)
Quarter: 2020Q4

REPORT INFORMATION
  Report Type: Spontaneous
  Country: FR (occurrence: FR)
  Receive Date: 20201013
  Receipt Date: 20201013
  Transmission Date: 20210114
  Serious: Yes (Other)
  Sender: FDA-Public Use
  Company Number: FR-ASTRAZENECA-2020SF20317

PATIENT
  Age: 16177 Day
  Sex: Female
  Weight: 69 kg

DRUGS (2)
  1. LYNPARZA [Suspect]
     Active Substance: OLAPARIB
     Indication: OVARIAN CANCER
     Dosage: 600 MG DAILY: 2 TABLETS OF 150 MG ON MORNING AND 2 TABLETS OF 150 MG ON EVENING
     Route: 048
     Dates: start: 20191021, end: 20200129
  2. LYNPARZA [Suspect]
     Active Substance: OLAPARIB
     Indication: OVARIAN CANCER
     Dosage: 500 MG DAILY: ONE TABLET OF 150 MG AND ONE TABLET OF 100 MG TWICE DAILY
     Route: 048
     Dates: start: 20200130, end: 20200525

REACTIONS (4)
  - Drug ineffective [Unknown]
  - Malignant neoplasm progression [Not Recovered/Not Resolved]
  - Therapy change [Not Recovered/Not Resolved]
  - Abdominal pain [Recovered/Resolved]

NARRATIVE: CASE EVENT DATE: 20191021
